FAERS Safety Report 25583463 (Version 2)
Quarter: 2025Q3

REPORT INFORMATION
  Report Type: Spontaneous
  Country: JO (occurrence: JO)
  Receive Date: 20250721
  Receipt Date: 20250727
  Transmission Date: 20251020
  Serious: No
  Sender: IPSEN BIOPHARMACEUTICALS, INC.
  Company Number: JO-IPSEN Group, Research and Development-2025-16202

PATIENT
  Sex: Female

DRUGS (5)
  1. DYSPORT [Suspect]
     Active Substance: ABOBOTULINUMTOXINA
     Indication: Skin wrinkling
  2. DYSPORT [Suspect]
     Active Substance: ABOBOTULINUMTOXINA
     Indication: Skin wrinkling
  3. DYSPORT [Suspect]
     Active Substance: ABOBOTULINUMTOXINA
     Indication: Dry eye
  4. LEVOTHYROXINE [Concomitant]
     Active Substance: LEVOTHYROXINE
     Indication: Hypothyroidism
     Dosage: 75 MCG QD
     Dates: start: 202201
  5. B12 [Concomitant]

REACTIONS (10)
  - Brow ptosis [Unknown]
  - Tension headache [Unknown]
  - Dry eye [Unknown]
  - Corneal abrasion [Unknown]
  - Asthenopia [Unknown]
  - Dry throat [Unknown]
  - Nasal dryness [Unknown]
  - Product administered at inappropriate site [Unknown]
  - Incorrect dose administered [Unknown]
  - Wrong technique in product usage process [Unknown]
